FAERS Safety Report 7871618-9 (Version None)
Quarter: 2011Q4

REPORT INFORMATION
  Report Type: 
  Country: None (occurrence: None)
  Receive Date: 20111029
  Receipt Date: 20110304
  Transmission Date: 20120403
  Serious: No
  Sender: FDA-Public Use
  Company Number: US-AMGEN-USASP2011012489

PATIENT
  Age: 58 Year
  Sex: Female
  Weight: 65.76 kg

DRUGS (6)
  1. PREDNISONE [Concomitant]
     Dosage: 1 MG, UNK
  2. LORAZEPAM [Concomitant]
     Dosage: 0.5 MG, UNK
  3. STOOL SOFTENER [Concomitant]
     Dosage: 100 MG, UNK
  4. CALCIUM [Concomitant]
     Dosage: 500 MG, UNK
  5. ENBREL [Suspect]
     Indication: PRODUCT USED FOR UNKNOWN INDICATION
     Dosage: 50 MG, QWK
  6. ASPIRIN [Concomitant]
     Dosage: 81 MG, UNK

REACTIONS (3)
  - INJECTION SITE INDURATION [None]
  - INJECTION SITE HAEMATOMA [None]
  - INJECTION SITE ERYTHEMA [None]
